FAERS Safety Report 15253288 (Version 1)
Quarter: 2018Q3

REPORT INFORMATION
  Report Type: Spontaneous
  Country: JP (occurrence: JP)
  Receive Date: 20180807
  Receipt Date: 20180807
  Transmission Date: 20181010
  Serious: Yes (Other)
  Sender: FDA-Public Use
  Company Number: PHHY2018JP061101

PATIENT
  Age: 77 Year
  Sex: Female

DRUGS (7)
  1. CARBOPLATIN. [Suspect]
     Active Substance: CARBOPLATIN
     Indication: PROPHYLAXIS
     Dosage: 4 MG/ML, QN, DAY 1 (DELIVERED AT 3?WEEK INTERVALS) (6 CYCLES)
     Route: 065
     Dates: start: 201312
  2. GEMCITABINE [Suspect]
     Active Substance: GEMCITABINE\GEMCITABINE HYDROCHLORIDE
     Indication: PROPHYLAXIS
     Dosage: 800?1000 MG/M2 ON DAYS 1 AND 8 (6 CYCLES) (DELIVERED AT 3?WEEK INTERVALS)
     Route: 065
     Dates: start: 201312
  3. BEVACIZUMAB. [Concomitant]
     Active Substance: BEVACIZUMAB
     Indication: DISEASE RECURRENCE
     Dosage: 15 MG/KG, TIW, SIX CYCLES OF TRIPLE THERAPY
     Route: 065
     Dates: start: 201412
  4. BEVACIZUMAB. [Concomitant]
     Active Substance: BEVACIZUMAB
     Dosage: 15 MG/KG, QD, 3 WEEK CYCLES
     Route: 065
     Dates: start: 201510
  5. GEMCITABINE [Suspect]
     Active Substance: GEMCITABINE\GEMCITABINE HYDROCHLORIDE
     Dosage: 800?1000 MG/M2 ON DAYS 1 AND 8
     Route: 065
     Dates: start: 201510
  6. GEMCITABINE [Suspect]
     Active Substance: GEMCITABINE\GEMCITABINE HYDROCHLORIDE
     Indication: SEROUS CYSTADENOCARCINOMA OVARY
     Dosage: 800?1000 MG/M2, SIX CYCLES OF TRIPLE THERAPY
     Route: 065
     Dates: start: 201412
  7. CARBOPLATIN. [Suspect]
     Active Substance: CARBOPLATIN
     Indication: SEROUS CYSTADENOCARCINOMA OVARY
     Dosage: 4 MG/ML, QN, SIX CYCLES OF TRIPLE THERAPY
     Route: 065
     Dates: start: 201412

REACTIONS (11)
  - Neutropenia [Unknown]
  - Cellulitis [Unknown]
  - Proteinuria [Unknown]
  - Epistaxis [Unknown]
  - Serous cystadenocarcinoma ovary [Unknown]
  - Thrombocytopenia [Unknown]
  - Leukopenia [Unknown]
  - Drug ineffective [Unknown]
  - Metastases to lymph nodes [Recovering/Resolving]
  - Malignant neoplasm progression [Unknown]
  - Metastases to spleen [Unknown]
